FAERS Safety Report 4640806-7 (Version None)
Quarter: 2005Q2

REPORT INFORMATION
  Report Type: 
  Country: None (occurrence: None)
  Receive Date: 20050324
  Receipt Date: 20050207
  Transmission Date: 20051028
  Serious: No
  Sender: FDA-Public Use
  Company Number: 212294

PATIENT
  Age: 53 Year
  Sex: Female
  Weight: 77.1 kg

DRUGS (1)
  1. AVASTIN [Suspect]
     Indication: METASTATIC RENAL CELL CARCINOMA
     Dosage: 5 MG, Q2W, INTRAVENOUS
     Route: 042
     Dates: start: 20041218

REACTIONS (1)
  - ABDOMINAL PAIN [None]
